FAERS Safety Report 15456624 (Version 2)
Quarter: 2018Q4

REPORT INFORMATION
  Report Type: Report from Study
  Country: IL (occurrence: IL)
  Receive Date: 20181002
  Receipt Date: 20181017
  Transmission Date: 20190204
  Serious: Yes (Hospitalization, Other)
  Sender: FDA-Public Use
  Company Number: IL-ACTELION-A-CH2018-179039

PATIENT
  Age: 75 Year
  Sex: Female

DRUGS (18)
  1. AGISERC [Concomitant]
  2. LOSEC [Concomitant]
     Active Substance: OMEPRAZOLE
  3. XARELTO [Concomitant]
     Active Substance: RIVAROXABAN
  4. CARDILOC [Concomitant]
     Active Substance: BISOPROLOL FUMARATE
  5. REMODULIN [Suspect]
     Active Substance: TREPROSTINIL
     Indication: PULMONARY ARTERIAL HYPERTENSION
     Dosage: 0.004 ML, PER HOUR
     Route: 058
  6. GLUCOPHAGE [Concomitant]
     Active Substance: METFORMIN HYDROCHLORIDE
  7. ASPIRIN. [Concomitant]
     Active Substance: ASPIRIN
  8. UPTRAVI [Suspect]
     Active Substance: SELEXIPAG
     Indication: PULMONARY ARTERIAL HYPERTENSION
     Dosage: UNK
     Route: 048
     Dates: start: 20180711
  9. NOVONORM [Concomitant]
     Active Substance: REPAGLINIDE
  10. VERAPAMIL [Concomitant]
     Active Substance: VERAPAMIL HYDROCHLORIDE
     Route: 042
  11. LANTUS [Concomitant]
     Active Substance: INSULIN GLARGINE
  12. APIDRA [Concomitant]
     Active Substance: INSULIN GLULISINE
  13. ELTROXIN [Concomitant]
     Active Substance: LEVOTHYROXINE
  14. UPTRAVI [Suspect]
     Active Substance: SELEXIPAG
     Dosage: 1000 ?G, BID
     Route: 048
     Dates: end: 20180926
  15. REVATIO [Concomitant]
     Active Substance: SILDENAFIL CITRATE
  16. LIPITOR [Concomitant]
     Active Substance: ATORVASTATIN CALCIUM
  17. CLONEX [Concomitant]
  18. LORIVAN [Concomitant]

REACTIONS (5)
  - Headache [Not Recovered/Not Resolved]
  - Dyspnoea [Not Recovered/Not Resolved]
  - Diarrhoea [Not Recovered/Not Resolved]
  - Condition aggravated [Not Recovered/Not Resolved]
  - Pulmonary arterial hypertension [Not Recovered/Not Resolved]

NARRATIVE: CASE EVENT DATE: 20180913
